FAERS Safety Report 23791520 (Version 1)
Quarter: 2024Q2

REPORT INFORMATION
  Report Type: Report from Study
  Country: US (occurrence: US)
  Receive Date: 20240429
  Receipt Date: 20240429
  Transmission Date: 20240717
  Serious: Yes (Hospitalization, Other)
  Sender: FDA-Public Use
  Company Number: US-NOVOPROD-1208623

PATIENT
  Sex: Male
  Weight: 65.76 kg

DRUGS (2)
  1. NOVOLOG [Suspect]
     Active Substance: INSULIN ASPART
     Indication: Product used for unknown indication
     Dosage: SLIDING SCALE
     Route: 058
  2. TRESIBA [Suspect]
     Active Substance: INSULIN DEGLUDEC
     Indication: Product used for unknown indication
     Dosage: 24 IU, BID
     Route: 058

REACTIONS (5)
  - Diabetic ketoacidosis [Unknown]
  - Impaired gastric emptying [Unknown]
  - Glycosylated haemoglobin increased [Unknown]
  - Osteomyelitis [Unknown]
  - Skin ulcer [Unknown]
